FAERS Safety Report 4645599-5 (Version None)
Quarter: 2005Q2

REPORT INFORMATION
  Report Type: 
  Country: None (occurrence: None)
  Receive Date: 20050331
  Receipt Date: 20050107
  Transmission Date: 20051028
  Serious: Yes (Hospitalization)
  Sender: FDA-Public Use
  Company Number: 05P-163-0285680-00

PATIENT
  Age: 65 Year
  Sex: Female
  Weight: 81.6475 kg

DRUGS (6)
  1. HUMIRA [Suspect]
     Indication: RHEUMATOID ARTHRITIS
     Dosage: 40 MG, 1 IN 2 WK, SUBCUTANEOUS
     Route: 058
     Dates: start: 20041001, end: 20041221
  2. SINGULAIR [Concomitant]
  3. GLIPIZIDE [Concomitant]
  4. QUINAPRIL HCL [Concomitant]
  5. METHYLPRED [Concomitant]
  6. METROPOLOL [Concomitant]

REACTIONS (2)
  - DEHYDRATION [None]
  - PNEUMONIA [None]
